FAERS Safety Report 6741080-8 (Version None)
Quarter: 2010Q2

REPORT INFORMATION
  Report Type: 
  Country: None (occurrence: None)
  Receive Date: 20100525
  Receipt Date: 20100525
  Transmission Date: 20101027
  Serious: No
  Sender: FDA-Public Use
  Company Number: None

PATIENT
  Age: 47 Year
  Weight: 92.9874 kg

DRUGS (1)
  1. TOPIRAMATE [Suspect]
     Dosage: 25X4X2

REACTIONS (1)
  - RASH [None]
